FAERS Safety Report 10684799 (Version 1)
Quarter: 2014Q4

REPORT INFORMATION
  Report Type: Spontaneous
  Country: US (occurrence: None)
  Receive Date: 20141210
  Receipt Date: 20141210
  Transmission Date: 20150529
  Serious: Yes (Other)
  Sender: FDA-Public Use
  Company Number: US201402720

PATIENT
  Age: 24 Year
  Sex: Female

DRUGS (2)
  1. CINRYZE [Suspect]
     Active Substance: HUMAN C1-ESTERASE INHIBITOR
     Indication: PROPHYLAXIS
     Dosage: 2000 U, OTHER (EVERY OTHER DAY AND AS NEEDED), INTRAVENOUS
     Route: 042
     Dates: start: 20140110
  2. CINRYZE [Suspect]
     Active Substance: HUMAN C1-ESTERASE INHIBITOR
     Indication: HEREDITARY ANGIOEDEMA
     Dosage: 2000 U, OTHER (EVERY OTHER DAY AND AS NEEDED), INTRAVENOUS
     Route: 042
     Dates: start: 20140110

REACTIONS (3)
  - Inappropriate schedule of drug administration [None]
  - Hereditary angioedema [None]
  - Therapy change [None]

NARRATIVE: CASE EVENT DATE: 20140110
